FAERS Safety Report 4289411-5 (Version None)
Quarter: 2004Q1

REPORT INFORMATION
  Report Type: 
  Country: None (occurrence: None)
  Receive Date: 20040126
  Receipt Date: 20031003
  Transmission Date: 20041129
  Serious: No
  Sender: FDA-Public Use
  Company Number: USA030330524

PATIENT
  Age: 82 Year
  Sex: Female
  Weight: 52 kg

DRUGS (12)
  1. FORTEO [Suspect]
     Indication: OSTEOPOROSIS
     Dosage: 20 UG/DAY
     Dates: start: 20030228
  2. CALTRATE (CALCIUM CARBONATE) [Concomitant]
  3. FIBERCON (POLYCARBOPHIL CALCIUM) [Concomitant]
  4. MULTI-VITAMINS [Concomitant]
  5. STOOL SOFTENER (DOCUSATE SODIUM) [Concomitant]
  6. SYNTHROID [Concomitant]
  7. CALCIUM PLUS D [Concomitant]
  8. DRISDOL [Concomitant]
  9. VITAMIN E [Concomitant]
  10. ASPIRIN [Concomitant]
  11. ALBUTEROL [Concomitant]
  12. ASTELIN [Concomitant]

REACTIONS (2)
  - HEADACHE [None]
  - MUSCLE SPASMS [None]
